FAERS Safety Report 21126391 (Version 1)
Quarter: 2022Q3

REPORT INFORMATION
  Report Type: Spontaneous
  Country: DK (occurrence: DK)
  Receive Date: 20220725
  Receipt Date: 20220725
  Transmission Date: 20221026
  Serious: Yes (Other)
  Sender: FDA-Public Use
  Company Number: None

PATIENT
  Age: 25 Year
  Sex: Female

DRUGS (6)
  1. LAMOTRIGINE [Suspect]
     Active Substance: LAMOTRIGINE
     Indication: Bipolar disorder
     Dosage: STRENGTH: 25 MG AND 100 MG. DOSAGE: INCREASED FROM 50 MG TO 100 MG TO 200 MG ON UNKNOWN DATES.
     Route: 048
     Dates: start: 20201109, end: 202101
  2. METHYLPHENIDATE [Suspect]
     Active Substance: METHYLPHENIDATE
     Indication: Attention deficit hyperactivity disorder
     Dosage: STRENGTH: 18MG, 36MG AND 54MG. DOSAGE: 54MG DECREASED TO 36MG DECREASED TO 18MG ON UNKNOWN DATES
     Route: 048
     Dates: start: 20210529, end: 2021
  3. OLANZAPINE [Suspect]
     Active Substance: OLANZAPINE
     Indication: Bipolar disorder
     Dosage: 2.5 MG (AS NECESSARY)
     Route: 048
     Dates: start: 20210826
  4. ARIPIPRAZOLE [Suspect]
     Active Substance: ARIPIPRAZOLE
     Indication: Bipolar disorder
     Dosage: UNK, DOSAGE: 5 MG INCREASED TO 10 MG ON UNKNOWN DATE
     Route: 048
     Dates: start: 20210112, end: 202101
  5. LEVOFLOXACIN [Suspect]
     Active Substance: LEVOFLOXACIN
     Indication: Bipolar disorder
     Dosage: 6 MMOL, QD (STRENGTH: 6 MMOL LI+)
     Route: 048
     Dates: start: 20210216
  6. QUETIAPINE [Suspect]
     Active Substance: QUETIAPINE
     Indication: Bipolar disorder
     Dosage: DOSAGE: INCREASED FROM AS NEEDED TO 50 MG. DAILY ON UNKNOWN DATE IN OCT2020
     Route: 048
     Dates: start: 20200708

REACTIONS (3)
  - Psychotic disorder [Unknown]
  - Depression [Unknown]
  - Suicidal ideation [Unknown]
